FAERS Safety Report 4893515-3 (Version None)
Quarter: 2006Q1

REPORT INFORMATION
  Report Type: 
  Country: None (occurrence: None)
  Receive Date: 20060124
  Receipt Date: 20060112
  Transmission Date: 20060701
  Serious: Yes (Hospitalization)
  Sender: FDA-Public Use
  Company Number: HQWYE313312JAN06

PATIENT
  Age: 36 Year
  Sex: Male

DRUGS (2)
  1. INDERAL LA [Suspect]
     Indication: TACHYCARDIA
     Dosage: 60 MG 1X PER 1 DAY
     Route: 048
     Dates: start: 20051209, end: 20060104
  2. MERCAZOLE (THIAMZOLE) [Suspect]
     Indication: TACHYCARDIA
     Dosage: 30 MG 1X PER 1 DAY
     Route: 048
     Dates: start: 20051213, end: 20051227

REACTIONS (1)
  - HEPATIC FUNCTION ABNORMAL [None]
